FAERS Safety Report 11532521 (Version 2)
Quarter: 2015Q4

REPORT INFORMATION
  Report Type: Spontaneous
  Country: DK (occurrence: DK)
  Receive Date: 20150921
  Receipt Date: 20151029
  Transmission Date: 20160304
  Serious: Yes (Hospitalization)
  Sender: FDA-Public Use
  Company Number: PHHY2015DK110670

PATIENT
  Age: 54 Year
  Sex: Female
  Weight: 90 kg

DRUGS (2)
  1. DICLOXACILLIN [Suspect]
     Active Substance: DICLOXACILLIN
     Indication: INFECTION
     Dosage: 1 G, TID
     Route: 048
     Dates: start: 20150729, end: 20150904
  2. CIPROFLOXACIN. [Suspect]
     Active Substance: CIPROFLOXACIN
     Indication: INFECTION
     Dosage: 500 MG, BID (STRENGTH: 500)
     Route: 048
     Dates: start: 20150818, end: 20150829

REACTIONS (2)
  - Skin exfoliation [Recovered/Resolved]
  - Toxic epidermal necrolysis [Recovered/Resolved]

NARRATIVE: CASE EVENT DATE: 20150903
